FAERS Safety Report 20986259 (Version 2)
Quarter: 2022Q3

REPORT INFORMATION
  Report Type: Report from Study
  Country: CO (occurrence: CO)
  Receive Date: 20220621
  Receipt Date: 20220718
  Transmission Date: 20221027
  Serious: Yes (Other)
  Sender: FDA-Public Use
  Company Number: CO-ASTELLAS-2022US021858

PATIENT
  Age: 91 Year
  Sex: Male

DRUGS (1)
  1. ENZALUTAMIDE [Suspect]
     Active Substance: ENZALUTAMIDE
     Indication: Hormone-refractory prostate cancer
     Route: 048
     Dates: start: 20201221

REACTIONS (10)
  - Presyncope [Recovered/Resolved]
  - Unresponsive to stimuli [Recovered/Resolved]
  - Hip fracture [Not Recovered/Not Resolved]
  - Fall [Recovered/Resolved]
  - Speech disorder [Not Recovered/Not Resolved]
  - Wound complication [Not Recovered/Not Resolved]
  - Postoperative wound complication [Not Recovered/Not Resolved]
  - Feeling cold [Recovered/Resolved]
  - Arthralgia [Not Recovered/Not Resolved]
  - Pain in extremity [Not Recovered/Not Resolved]

NARRATIVE: CASE EVENT DATE: 20210601
